FAERS Safety Report 12488485 (Version 4)
Quarter: 2017Q2

REPORT INFORMATION
  Report Type: Spontaneous
  Country: ES (occurrence: ES)
  Receive Date: 20160622
  Receipt Date: 20170512
  Transmission Date: 20170830
  Serious: Yes (Other)
  Sender: FDA-Public Use
  Company Number: ES-VIFOR (INTERNATIONAL) INC.-VIT-2016-02882

PATIENT
  Age: 89 Year
  Sex: Male
  Weight: 70 kg

DRUGS (7)
  1. HEMOVAS [Concomitant]
     Dosage: TOOK FOR MORE THAN ONE YEAR
  2. ADIRO [Concomitant]
     Active Substance: ASPIRIN
     Dosage: TOOK FOR MORE THAN ONE YEAR
  3. MANIDIPINO [Concomitant]
     Active Substance: MANIDIPINE
     Dosage: TOOK FOR MORE THAN ONE YEAR
  4. SEGURIL [Concomitant]
     Active Substance: FUROSEMIDE
     Dosage: TOOK FOR MORE THAN FIVE YEARS
  5. VELPHORO [Suspect]
     Active Substance: FERRIC OXYHYDROXIDE
     Indication: HYPERPHOSPHATAEMIA
     Route: 048
     Dates: start: 20160603, end: 20160606
  6. EPOETIN ALFA [Concomitant]
     Active Substance: ERYTHROPOIETIN
     Dosage: TOOK FOR MORE THAN ONE YEAR
  7. ATORVASTATIN CALCIUM. [Concomitant]
     Active Substance: ATORVASTATIN CALCIUM
     Dosage: TOOK FOR MORE THAN ONE YEAR

REACTIONS (1)
  - Pemphigoid [Not Recovered/Not Resolved]

NARRATIVE: CASE EVENT DATE: 20160609
